FAERS Safety Report 12655951 (Version 1)
Quarter: 2016Q3

REPORT INFORMATION
  Report Type: Spontaneous
  Country: US (occurrence: US)
  Receive Date: 20160816
  Receipt Date: 20160816
  Transmission Date: 20161109
  Serious: No
  Sender: FDA-Public Use
  Company Number: US-PFIZER INC-2016387621

PATIENT
  Age: 9 Year
  Sex: Male

DRUGS (1)
  1. VIBRAMYCIN [Suspect]
     Active Substance: DOXYCYCLINE
     Indication: LYME DISEASE
     Dosage: UNK

REACTIONS (4)
  - Rash [Unknown]
  - Burning sensation [Unknown]
  - Product use issue [Unknown]
  - Peripheral swelling [Unknown]
